FAERS Safety Report 9253871 (Version 2)
Quarter: 2013Q4

REPORT INFORMATION
  Report Type: Spontaneous
  Country: US (occurrence: US)
  Receive Date: 20130425
  Receipt Date: 20131025
  Transmission Date: 20140711
  Serious: Yes (Hospitalization)
  Sender: FDA-Public Use
  Company Number: US-BAYER-2013-049475

PATIENT
  Age: 24 Year
  Sex: Female
  Weight: 75.65 kg

DRUGS (3)
  1. MIRENA [Suspect]
     Dosage: 20 MCG/24HR, CONT
     Route: 015
     Dates: start: 20090721, end: 20100813
  2. TORADOL [Concomitant]
  3. VICODIN [Concomitant]

REACTIONS (8)
  - Embedded device [None]
  - Ovarian cyst [None]
  - Device difficult to use [None]
  - Pelvic pain [None]
  - Abdominal pain [None]
  - Injury [None]
  - Emotional distress [None]
  - Inappropriate schedule of drug administration [None]
